FAERS Safety Report 9459664 (Version 4)
Quarter: 2013Q4

REPORT INFORMATION
  Report Type: Spontaneous
  Country: FR (occurrence: FR)
  Receive Date: 20130815
  Receipt Date: 20131021
  Transmission Date: 20140711
  Serious: Yes (Other)
  Sender: FDA-Public Use
  Company Number: PHHY2013FR087892

PATIENT
  Age: 61 Year
  Sex: Male
  Weight: 70 kg

DRUGS (12)
  1. ONBREZ [Suspect]
     Indication: DYSPNOEA
     Dosage: 300 UG, QD
     Dates: start: 20130701, end: 20130703
  2. ONBREZ [Suspect]
     Indication: OFF LABEL USE
  3. ONBREZ [Suspect]
     Indication: COUGH
  4. INORIAL [Concomitant]
     Indication: HYPERSENSITIVITY
     Dosage: 1 DF, QD
     Route: 048
     Dates: start: 20130621, end: 20130630
  5. LANTUS [Concomitant]
     Dosage: 38 IU, QD
     Route: 058
     Dates: start: 201207
  6. TAHOR [Concomitant]
     Dosage: 20 MG, QD
     Route: 048
  7. DIAMICRON [Concomitant]
     Dosage: 2 DF, QD
     Route: 048
  8. PLAVIX [Concomitant]
     Dosage: 1 DF, QD
     Route: 048
  9. JANUMET [Concomitant]
     Dosage: 2 DF, QD
  10. SPIRIVA [Concomitant]
     Indication: DYSPNOEA
     Dosage: 1 DF, QD
     Dates: start: 20130701
  11. SPIRIVA [Concomitant]
     Indication: COUGH
  12. PARIET [Concomitant]

REACTIONS (4)
  - Hypoglycaemia [Unknown]
  - Tremor [Unknown]
  - Hyperhidrosis [Recovered/Resolved]
  - Malaise [Unknown]
